FAERS Safety Report 19677576 (Version 1)
Quarter: 2021Q3

REPORT INFORMATION
  Report Type: Spontaneous
  Country: IN (occurrence: IN)
  Receive Date: 20210809
  Receipt Date: 20210809
  Transmission Date: 20211014
  Serious: Yes (Death)
  Sender: FDA-Public Use
  Company Number: IN-PFIZER INC-2021736895

PATIENT
  Age: 46 Year
  Sex: Female

DRUGS (3)
  1. PALBACE [Suspect]
     Active Substance: PALBOCICLIB
     Indication: BREAST CANCER RECURRENT
     Dosage: 125 MG, OD, 3 WEEKS THEN 1 WEEK OFF
     Route: 048
     Dates: start: 20210612
  2. FULVESTRANT. [Concomitant]
     Active Substance: FULVESTRANT
     Dosage: 500MG I/M (DAY?1, DAY?14 AND DAY?28)
     Route: 030
  3. LEUPROSTA [Concomitant]
     Dosage: 11.25 MG
     Route: 030

REACTIONS (1)
  - Death [Fatal]
